FAERS Safety Report 10399166 (Version 1)
Quarter: 2014Q3

REPORT INFORMATION
  Report Type: Spontaneous
  Country: US (occurrence: None)
  Receive Date: 20140818
  Receipt Date: 20140818
  Transmission Date: 20150326
  Serious: No
  Sender: FDA-Public Use
  Company Number: None

PATIENT
  Age: 52 Year
  Sex: Male
  Weight: 86.18 kg

DRUGS (2)
  1. ZOLPIDEM [Suspect]
     Active Substance: ZOLPIDEM\ZOLPIDEM TARTRATE
     Indication: CIRCADIAN RHYTHM SLEEP DISORDER
     Dosage: 1 TABLET AT BEDTIME TAKEN BY MOUTH
     Route: 048
     Dates: start: 20140130, end: 20140810
  2. ZOLPIDEM [Suspect]
     Active Substance: ZOLPIDEM\ZOLPIDEM TARTRATE
     Indication: INSOMNIA
     Dosage: 1 TABLET AT BEDTIME TAKEN BY MOUTH
     Route: 048
     Dates: start: 20140130, end: 20140810

REACTIONS (11)
  - Abnormal behaviour [None]
  - Legal problem [None]
  - Suicide attempt [None]
  - Aggression [None]
  - Amnesia [None]
  - Alcohol use [None]
  - Physical assault [None]
  - Loss of consciousness [None]
  - Delusion [None]
  - Hallucination [None]
  - Memory impairment [None]

NARRATIVE: CASE EVENT DATE: 20140811
